FAERS Safety Report 8317652-6 (Version None)
Quarter: 2012Q2

REPORT INFORMATION
  Report Type: 
  Country: None (occurrence: None)
  Receive Date: 20120427
  Receipt Date: 20090629
  Transmission Date: 20120825
  Serious: No
  Sender: FDA-Public Use
  Company Number: US-TEVA-2009007965

PATIENT
  Sex: Female
  Weight: 83.99 kg

DRUGS (15)
  1. MYSOLINE [Concomitant]
  2. BACTROBAN [Concomitant]
  3. CLEOCIN HYDROCHLORIDE [Concomitant]
  4. LOTEMAX [Concomitant]
  5. VICODIN [Concomitant]
  6. NUVIGIL [Suspect]
     Indication: SLEEP APNOEA SYNDROME
     Route: 048
     Dates: start: 20090628
  7. CYPROHEPTADINE HCL [Concomitant]
  8. ZOMIG [Concomitant]
  9. COUMADIN [Concomitant]
  10. BENAZEPRIL HYDROCHLORIDE [Concomitant]
  11. LOTRISONE [Concomitant]
  12. NUVIGIL [Suspect]
     Indication: NARCOLEPSY
  13. TIMOLOL MALEATE [Concomitant]
  14. PHENERGAN HCL [Concomitant]
  15. ALBUTEROL [Concomitant]

REACTIONS (4)
  - DIARRHOEA [None]
  - NAUSEA [None]
  - FEELING JITTERY [None]
  - PSYCHOMOTOR HYPERACTIVITY [None]
